FAERS Safety Report 24859143 (Version 1)
Quarter: 2025Q1

REPORT INFORMATION
  Report Type: Spontaneous
  Country: PT (occurrence: PT)
  Receive Date: 20250118
  Receipt Date: 20250118
  Transmission Date: 20250409
  Serious: Yes (Hospitalization)
  Sender: ACCORD
  Company Number: PT-MLMSERVICE-20250101-PI328060-00218-1

PATIENT
  Age: 72 Year
  Sex: Male

DRUGS (3)
  1. METHOTREXATE [Suspect]
     Active Substance: METHOTREXATE
     Indication: Product used for unknown indication
     Dosage: CUMULATIVE DOSE 43MG/M2
  2. ETORICOXIB [Concomitant]
     Active Substance: ETORICOXIB
  3. PREDNISOLONE [Concomitant]
     Active Substance: PREDNISOLONE

REACTIONS (7)
  - Myelosuppression [Recovered/Resolved]
  - Renal impairment [Recovered/Resolved]
  - Herpes simplex [Unknown]
  - Pneumonia streptococcal [Unknown]
  - Neutropenic colitis [Unknown]
  - Oropharyngeal candidiasis [Unknown]
  - Accidental poisoning [Unknown]
